FAERS Safety Report 15417511 (Version 3)
Quarter: 2019Q1

REPORT INFORMATION
  Report Type: Spontaneous
  Country: BR (occurrence: BR)
  Receive Date: 20180924
  Receipt Date: 20190108
  Transmission Date: 20190417
  Serious: Yes (Other)
  Sender: FDA-Public Use
  Company Number: BR-ROCHE-2188681

PATIENT
  Age: 67 Year
  Sex: Female

DRUGS (5)
  1. VENLAFAXINE [Concomitant]
     Active Substance: VENLAFAXINE HYDROCHLORIDE
     Indication: DEPRESSION
     Route: 048
  2. ACTEMRA [Suspect]
     Active Substance: TOCILIZUMAB
     Indication: RHEUMATIC DISORDER
     Route: 042
     Dates: start: 201602
  3. METHOTREXATE. [Concomitant]
     Active Substance: METHOTREXATE
  4. LEFLUNOMIDE. [Concomitant]
     Active Substance: LEFLUNOMIDE
     Route: 065
     Dates: start: 2016
  5. ALPRAZOLAM. [Concomitant]
     Active Substance: ALPRAZOLAM
     Indication: DEPRESSION
     Route: 048

REACTIONS (8)
  - Vena cava thrombosis [Recovering/Resolving]
  - Hiatus hernia [Unknown]
  - Calcinosis [Unknown]
  - Intervertebral disc degeneration [Unknown]
  - Hepatic steatosis [Unknown]
  - Phlebolith [Unknown]
  - Renal vein thrombosis [Recovering/Resolving]
  - Oedema peripheral [Unknown]

NARRATIVE: CASE EVENT DATE: 201807
